FAERS Safety Report 5633001-6 (Version None)
Quarter: 2008Q1

REPORT INFORMATION
  Report Type: 
  Country: None (occurrence: None)
  Receive Date: 20080214
  Receipt Date: 20080129
  Transmission Date: 20080703
  Serious: Yes (Hospitalization)
  Sender: FDA-Public Use
  Company Number: JPKYO-S-20080008

PATIENT
  Age: 58 Year
  Sex: Female

DRUGS (1)
  1. NAVELBINE [Suspect]
     Indication: BREAST CANCER RECURRENT
     Dosage: 0 MG/M2 QD IV
     Route: 042
     Dates: start: 20070704, end: 20070718

REACTIONS (2)
  - HEPATIC FAILURE [None]
  - METASTASES TO LIVER [None]
